FAERS Safety Report 8152546 (Version 2)
Quarter: 2013Q2

REPORT INFORMATION
  Report Type: Spontaneous
  Country: US (occurrence: US)
  Receive Date: 20110922
  Receipt Date: 20130423
  Transmission Date: 20140414
  Serious: Yes (Other)
  Sender: FDA-Public Use
  Company Number: US-ASTRAZENECA-2011SE12696

PATIENT
  Age: 45 Year
  Sex: Male
  Weight: 89.3 kg

DRUGS (8)
  1. SEROQUEL [Suspect]
     Indication: MENTAL DISORDER
     Route: 048
     Dates: start: 20080721, end: 20090722
  2. SERTRALINE HCL [Concomitant]
     Indication: AFFECTIVE DISORDER
     Route: 048
     Dates: start: 20080721, end: 20090722
  3. METHOCARBAMOL [Concomitant]
     Indication: MUSCLE RELAXANT THERAPY
     Route: 048
     Dates: start: 20080807, end: 20090808
  4. TRAMADOL HCL [Concomitant]
     Indication: PAIN
     Route: 048
     Dates: start: 20080807, end: 20090808
  5. VARDENAFIL HCL [Concomitant]
     Indication: ERECTILE DYSFUNCTION
     Dosage: ONE HALF TABLET,ONE HOUR PRIOR TO SEXUAL ACTIVTY
     Route: 048
     Dates: start: 20080807, end: 20090808
  6. PRAZOSIN HCL [Concomitant]
     Indication: NIGHTMARE
     Dosage: ONE CAPSULE AT BEDTIME FOR 7 DAYS,THEN TAKE TWO CAPSULE AT BEDTIME
     Route: 048
     Dates: start: 20080913, end: 20090913
  7. CAVERJECT [Concomitant]
  8. SILDENAFIL [Concomitant]

REACTIONS (3)
  - Pancreatitis [Unknown]
  - Diabetic coma [Unknown]
  - Type 2 diabetes mellitus [Unknown]
